FAERS Safety Report 16819233 (Version 2)
Quarter: 2019Q3

REPORT INFORMATION
  Report Type: Spontaneous
  Country: BR (occurrence: BR)
  Receive Date: 20190917
  Receipt Date: 20190925
  Transmission Date: 20191005
  Serious: Yes (Life-Threatening)
  Sender: FDA-Public Use
  Company Number: BR-GE HEALTHCARE LIFE SCIENCES-2019CSU004630

PATIENT

DRUGS (2)
  1. OMNIPAQUE [Suspect]
     Active Substance: IOHEXOL
     Indication: ANGIOGRAM
     Dosage: 80 ML, SINGLE, AT 3.5 ML PER SECOND
     Route: 042
     Dates: start: 20190829, end: 20190829
  2. OMNIPAQUE [Suspect]
     Active Substance: IOHEXOL
     Indication: AORTIC ANEURYSM

REACTIONS (3)
  - Pneumomediastinum [Recovering/Resolving]
  - Device failure [Recovered/Resolved]
  - Air embolism [Recovering/Resolving]

NARRATIVE: CASE EVENT DATE: 20190829
